FAERS Safety Report 8821502 (Version 1)
Quarter: 2012Q4

REPORT INFORMATION
  Report Type: 
  Country: US (occurrence: US)
  Receive Date: 20121002
  Receipt Date: 20121002
  Transmission Date: 20130627
  Serious: Yes (Hospitalization)
  Sender: FDA-Public Use
  Company Number: US-MERCK-1210USA000755

PATIENT
  Sex: Male

DRUGS (9)
  1. JANUVIA [Suspect]
     Route: 048
  2. PRADAXA [Suspect]
     Dosage: 300 mg, UNK
     Route: 048
  3. MULTAQ [Suspect]
  4. METFORMIN [Suspect]
  5. FUROSEMIDE [Concomitant]
  6. ALLOPURINOL [Concomitant]
     Dosage: 300 mg, UNK
  7. CRESTOR [Concomitant]
     Dosage: 10 mg, UNK
  8. METFORMIN [Concomitant]
     Dosage: 2000 mg, UNK
  9. PROPRANOLOL HYDROCHLORIDE [Concomitant]
     Dosage: 40 mg, UNK

REACTIONS (7)
  - Asthenia [Unknown]
  - Dizziness [Unknown]
  - Diarrhoea [Unknown]
  - Pyrexia [Unknown]
  - Fluid retention [Unknown]
  - Malaise [Unknown]
  - Headache [Unknown]
